FAERS Safety Report 5699630-9 (Version None)
Quarter: 2008Q2

REPORT INFORMATION
  Report Type: 
  Country: None (occurrence: None)
  Receive Date: 20080410
  Receipt Date: 20080402
  Transmission Date: 20081010
  Serious: Yes (Other)
  Sender: FDA-Public Use
  Company Number: PHEH2008US03376

PATIENT
  Sex: Female

DRUGS (1)
  1. ZELNORM [Suspect]
     Indication: CONSTIPATION
     Dosage: UNK, UNK
     Dates: start: 20061001, end: 20070401

REACTIONS (3)
  - CEREBROVASCULAR ACCIDENT [None]
  - EMOTIONAL DISORDER [None]
  - INJURY [None]
